FAERS Safety Report 8314854-X (Version None)
Quarter: 2012Q2

REPORT INFORMATION
  Report Type: 
  Country: None (occurrence: None)
  Receive Date: 20120426
  Receipt Date: 20120224
  Transmission Date: 20120825
  Serious: No
  Sender: FDA-Public Use
  Company Number: US-MYLANLABS-2011S1025011

PATIENT
  Age: 75 Year
  Sex: Female

DRUGS (3)
  1. CLONIDINE HYDROCHLORIDE [Suspect]
     Indication: BLOOD PRESSURE INCREASED
     Route: 048
     Dates: start: 20111130
  2. CLONIDINE [Suspect]
     Indication: BLOOD PRESSURE INCREASED
     Dosage: QWEEK
     Route: 062
     Dates: start: 20111130, end: 20120201
  3. AMLODIPINE [Concomitant]
     Indication: BLOOD PRESSURE INCREASED

REACTIONS (5)
  - INSOMNIA [None]
  - HEADACHE [None]
  - BLOOD PRESSURE INCREASED [None]
  - NIGHTMARE [None]
  - DRUG INEFFECTIVE [None]
